FAERS Safety Report 9758321 (Version 1)
Quarter: 2013Q4

REPORT INFORMATION
  Report Type: Spontaneous
  Country: US (occurrence: US)
  Receive Date: 20131216
  Receipt Date: 20131216
  Transmission Date: 20140711
  Serious: No
  Sender: FDA-Public Use
  Company Number: US-ENDO PHARMACEUTICALS INC.-BUTA20130009

PATIENT
  Age: 56 Year
  Sex: Female

DRUGS (3)
  1. BUTALBITAL/ACETAMINOPHEN/CAFFEINE TABLETS [Suspect]
     Indication: HEADACHE
     Dosage: 50/325/40 MG
     Route: 048
     Dates: start: 201306, end: 201306
  2. BUTALBITAL/ACETAMINOPHEN/CAFFEINE TABLETS [Suspect]
     Dosage: 50/325/40 MG
     Route: 048
     Dates: start: 201306, end: 20130630
  3. FIORICET [Concomitant]
     Indication: HEADACHE
     Dosage: 50/325/40 MG
     Route: 048
     Dates: start: 1998, end: 201306

REACTIONS (2)
  - Diarrhoea [Not Recovered/Not Resolved]
  - Abdominal pain [Not Recovered/Not Resolved]
